FAERS Safety Report 8389962-8 (Version None)
Quarter: 2012Q2

REPORT INFORMATION
  Report Type: 
  Country: None (occurrence: None)
  Receive Date: 20120529
  Receipt Date: 20120522
  Transmission Date: 20120825
  Serious: No
  Sender: FDA-Public Use
  Company Number: US-PFIZER INC-2012124888

PATIENT
  Sex: Female

DRUGS (1)
  1. SUTENT [Suspect]
     Indication: RENAL CANCER
     Dosage: 37.5 MG, (12.5 MG 3 CAPS DAILY)
     Dates: start: 20120430

REACTIONS (2)
  - RENAL CANCER [None]
  - DISEASE PROGRESSION [None]
